FAERS Safety Report 15149540 (Version 1)
Quarter: 2018Q3

REPORT INFORMATION
  Report Type: Not Available
  Country: US (occurrence: US)
  Receive Date: 20180716
  Receipt Date: 20180716
  Transmission Date: 20181010
  Serious: No
  Sender: FDA-Public Use
  Company Number: US-NEUROCRINE BIOSCIENCES INC.-2018NBI02069

PATIENT
  Age: 37 Year
  Sex: Male

DRUGS (12)
  1. TYLENOL [Concomitant]
     Active Substance: ACETAMINOPHEN
  2. KLONOPIN [Concomitant]
     Active Substance: CLONAZEPAM
  3. REVITON [Concomitant]
  4. CLONAZEPAM. [Concomitant]
     Active Substance: CLONAZEPAM
  5. SYSTANE (HYPROMELLOSE 2910 (4000 MPA.S)) [Concomitant]
     Active Substance: HYPROMELLOSE 2910 (4000 MPA.S)
  6. ATIVAN [Concomitant]
     Active Substance: LORAZEPAM
  7. ABILIFY [Concomitant]
     Active Substance: ARIPIPRAZOLE
  8. NAPROXEN. [Concomitant]
     Active Substance: NAPROXEN
  9. DUONEB [Concomitant]
     Active Substance: ALBUTEROL SULFATE\IPRATROPIUM BROMIDE
  10. VITAMIN D3 [Concomitant]
     Active Substance: CHOLECALCIFEROL
  11. INGREZZA [Suspect]
     Active Substance: VALBENAZINE
     Indication: TARDIVE DYSKINESIA
     Route: 048
     Dates: start: 201802
  12. FISH OIL [Concomitant]
     Active Substance: FISH OIL

REACTIONS (2)
  - Dyspnoea [Unknown]
  - Wheezing [Unknown]

NARRATIVE: CASE EVENT DATE: 201806
